FAERS Safety Report 25127340 (Version 1)
Quarter: 2025Q1

REPORT INFORMATION
  Report Type: Spontaneous
  Country: ES (occurrence: ES)
  Receive Date: 20250327
  Receipt Date: 20250327
  Transmission Date: 20250409
  Serious: Yes (Hospitalization)
  Sender: JOHNSON AND JOHNSON
  Company Number: ES-MYLANLABS-2025M1023406

PATIENT
  Age: 76 Year
  Sex: Male

DRUGS (5)
  1. ZYTIGA [Interacting]
     Active Substance: ABIRATERONE ACETATE
     Indication: Prostate cancer metastatic
     Dosage: 100 MILLIGRAM, QD
     Dates: start: 202110, end: 202311
  2. ZYTIGA [Interacting]
     Active Substance: ABIRATERONE ACETATE
     Indication: Hormone-refractory prostate cancer
  3. ROSUVASTATIN [Interacting]
     Active Substance: ROSUVASTATIN
     Indication: Hypercholesterolaemia
     Dosage: 10 MILLIGRAM, QD
     Dates: start: 2020, end: 202311
  4. PREDNISONE [Concomitant]
     Active Substance: PREDNISONE
     Indication: Prostate cancer metastatic
     Dosage: 10 MILLIGRAM, QD
     Dates: start: 202110
  5. PREDNISONE [Concomitant]
     Active Substance: PREDNISONE
     Indication: Hormone-refractory prostate cancer

REACTIONS (2)
  - Rhabdomyolysis [Recovering/Resolving]
  - Drug interaction [Recovering/Resolving]

NARRATIVE: CASE EVENT DATE: 20230101
